FAERS Safety Report 5665134-2 (Version None)
Quarter: 2008Q1

REPORT INFORMATION
  Report Type: 
  Country: None (occurrence: None)
  Receive Date: 20080314
  Receipt Date: 20080305
  Transmission Date: 20080703
  Serious: Yes (Hospitalization, Other)
  Sender: FDA-Public Use
  Company Number: US-MERCK-0705USA01333

PATIENT
  Age: 51 Year
  Sex: Female
  Weight: 76 kg

DRUGS (1)
  1. FOSAMAX [Suspect]
     Indication: OSTEOPOROSIS
     Route: 048
     Dates: start: 20030101, end: 20050101

REACTIONS (13)
  - BACK PAIN [None]
  - BRONCHIECTASIS [None]
  - BRONCHITIS [None]
  - CERUMEN IMPACTION [None]
  - DEAFNESS BILATERAL [None]
  - EMPHYSEMA [None]
  - MUSCLE SPASMS [None]
  - OSTEOMYELITIS [None]
  - OSTEONECROSIS [None]
  - OSTEOPENIA [None]
  - PERIODONTAL DISEASE [None]
  - PNEUMONIA [None]
  - RHINITIS [None]
